FAERS Safety Report 8875288 (Version 1)
Quarter: 2012Q4

REPORT INFORMATION
  Report Type: 
  Country: US (occurrence: US)
  Receive Date: 20121030
  Receipt Date: 20121030
  Transmission Date: 20130627
  Serious: Yes (Other)
  Sender: FDA-Public Use
  Company Number: US-ROCHE-1137695

PATIENT
  Sex: Female

DRUGS (27)
  1. NUTROPIN [Suspect]
     Indication: HYPOPITUITARISM
     Route: 050
  2. OXYCODONE HCL [Concomitant]
     Route: 065
  3. PREDNISONE [Concomitant]
  4. LEXAPRO [Concomitant]
     Route: 065
  5. SYNTHROID [Concomitant]
     Route: 065
  6. LIOTHYRONINE SODIUM [Concomitant]
     Route: 065
  7. CALCIUM [Concomitant]
     Dosage: 200-600 mg
     Route: 065
  8. MORPHINE SULPHATE DRIP [Concomitant]
     Route: 065
  9. XANAX [Concomitant]
     Route: 065
  10. ZANAFLEX [Concomitant]
  11. HYDROCHLOROTHIAZIDE [Concomitant]
     Route: 065
  12. FLAXSEED OIL [Concomitant]
     Route: 065
  13. MONOPRIL PLUS [Concomitant]
     Route: 065
  14. OMEPRAZOLE [Concomitant]
     Route: 065
  15. RECLAST [Concomitant]
     Dosage: 5MG/100ML
     Route: 065
  16. VITAMIN D3 [Concomitant]
     Dosage: 1000000 unit/Gm
     Route: 065
  17. DESMOPRESSIN [Concomitant]
     Route: 065
  18. CIPRO HC [Concomitant]
     Route: 065
  19. ZYRTEC [Concomitant]
     Route: 065
  20. VOLTAREN [Concomitant]
  21. OMEGA 3-6-9 [Concomitant]
     Route: 001
  22. VITAMIN C [Concomitant]
     Dosage: 100-2000mg daily
     Route: 065
  23. CINNAMON [Concomitant]
     Route: 065
  24. SELENIUM [Concomitant]
     Route: 065
  25. CHROMIUM PICOLINATE [Concomitant]
     Route: 065
  26. ASPRIN-EC [Concomitant]
     Route: 065
  27. DEXAMETHASONE SODIUM PHOSPHATE [Concomitant]
     Dosage: 4mg/ml
     Route: 065

REACTIONS (2)
  - Foot fracture [Unknown]
  - Gastritis [Unknown]
